FAERS Safety Report 22625355 (Version 7)
Quarter: 2024Q1

REPORT INFORMATION
  Report Type: Spontaneous
  Country: US (occurrence: US)
  Receive Date: 20230621
  Receipt Date: 20240130
  Transmission Date: 20240410
  Serious: Yes (Hospitalization, Other)
  Sender: FDA-Public Use
  Company Number: US-PFIZER INC-202300222886

PATIENT
  Age: 72 Year
  Sex: Male

DRUGS (4)
  1. OXBRYTA [Suspect]
     Active Substance: VOXELOTOR
     Indication: Sickle cell disease
     Dosage: 1500 MG, DAILY
     Route: 048
  2. OXBRYTA [Suspect]
     Active Substance: VOXELOTOR
     Dosage: 1500 MG, DAILY
     Route: 048
  3. OXBRYTA [Suspect]
     Active Substance: VOXELOTOR
     Dosage: 1500 MG, DAILY
     Route: 048
  4. OXBRYTA [Suspect]
     Active Substance: VOXELOTOR
     Dosage: EVERY MORNING

REACTIONS (22)
  - Limb injury [Unknown]
  - Coma [Unknown]
  - Furuncle [Not Recovered/Not Resolved]
  - Haemoglobin decreased [Unknown]
  - Anaemia [Unknown]
  - Blister [Unknown]
  - Nausea [Unknown]
  - Fatigue [Unknown]
  - Viral infection [Unknown]
  - Gait inability [Unknown]
  - Somnolence [Unknown]
  - Weight decreased [Recovered/Resolved]
  - Abdominal discomfort [Not Recovered/Not Resolved]
  - Pain in jaw [Not Recovered/Not Resolved]
  - Asthenia [Not Recovered/Not Resolved]
  - Malaise [Not Recovered/Not Resolved]
  - Pain in extremity [Unknown]
  - Abdominal pain [Not Recovered/Not Resolved]
  - Back pain [Not Recovered/Not Resolved]
  - Pain [Not Recovered/Not Resolved]
  - Ulcer haemorrhage [Unknown]
  - Illness [Unknown]

NARRATIVE: CASE EVENT DATE: 20230501
